FAERS Safety Report 6667304-3 (Version None)
Quarter: 2010Q2

REPORT INFORMATION
  Report Type: 
  Country: None (occurrence: None)
  Receive Date: 20100401
  Receipt Date: 20100401
  Transmission Date: 20101027
  Serious: Yes (Life-Threatening, Hospitalization)
  Sender: FDA-Public Use
  Company Number: None

PATIENT
  Age: 31 Year
  Sex: Male
  Weight: 61.2356 kg

DRUGS (1)
  1. SULFAMETHOXAZOLE AND TRIMETHOPRIM [Suspect]
     Dosage: 20 ML OF 80 MG SMZ/16 MG TMP Q6H IV
     Route: 042
     Dates: start: 20100307, end: 20100308

REACTIONS (4)
  - APHASIA [None]
  - DOCUMENTED HYPERSENSITIVITY TO ADMINISTERED DRUG [None]
  - HAEMOLYTIC ANAEMIA [None]
  - TACHYPNOEA [None]
